FAERS Safety Report 5145354-6 (Version None)
Quarter: 2006Q4

REPORT INFORMATION
  Report Type: 
  Country: None (occurrence: None)
  Receive Date: 20061101
  Receipt Date: 20060911
  Transmission Date: 20070319
  Serious: No
  Sender: FDA-Public Use
  Company Number: 2006-146250-NL

PATIENT
  Age: 33 Year
  Sex: Female

DRUGS (2)
  1. NUVARING [Suspect]
     Indication: CONTRACEPTION
     Dosage: DF
     Dates: start: 20050801, end: 20060601
  2. IBUPROFEN [Concomitant]

REACTIONS (1)
  - UNINTENDED PREGNANCY [None]
